FAERS Safety Report 16158216 (Version 6)
Quarter: 2023Q2

REPORT INFORMATION
  Report Type: Report from Study
  Country: IT (occurrence: IT)
  Receive Date: 20190404
  Receipt Date: 20230602
  Transmission Date: 20230721
  Serious: Yes (Hospitalization)
  Sender: FDA-Public Use
  Company Number: IT-002147023-PHHY2019IT075162

PATIENT

DRUGS (7)
  1. RUXOLITINIB [Suspect]
     Active Substance: RUXOLITINIB
     Indication: Myelofibrosis
     Dosage: 20 MG PER DAY
     Route: 048
     Dates: start: 20170721
  2. RUXOLITINIB [Suspect]
     Active Substance: RUXOLITINIB
     Dosage: 10 MG PER DAY
     Route: 048
     Dates: end: 201908
  3. RUXOLITINIB [Suspect]
     Active Substance: RUXOLITINIB
     Dosage: UNK (TOTAL DAILY DOSE 30)
     Route: 065
     Dates: start: 20170721, end: 20170911
  4. RUXOLITINIB [Suspect]
     Active Substance: RUXOLITINIB
     Dosage: UNK (TOTAL DAILY DOSE 20)
     Route: 065
     Dates: start: 20170912, end: 20171107
  5. RUXOLITINIB [Suspect]
     Active Substance: RUXOLITINIB
     Dosage: UNK (TOTAL DAILY DOSE: 10)
     Route: 065
     Dates: start: 20171108, end: 20180417
  6. RUXOLITINIB [Suspect]
     Active Substance: RUXOLITINIB
     Dosage: UNK (TOTAL DAILY DOSE 20)
     Route: 065
     Dates: start: 20180418, end: 20190617
  7. RUXOLITINIB [Suspect]
     Active Substance: RUXOLITINIB
     Dosage: UNK (TOTAL DAILY DOSE: 10)
     Route: 065
     Dates: start: 20190702, end: 20190825

REACTIONS (5)
  - Haemoglobin decreased [Unknown]
  - Pneumonia [Recovered/Resolved]
  - Pneumonia legionella [Recovered/Resolved]
  - Urinary tract infection [Recovered/Resolved]
  - Urinary tract infection [Recovered/Resolved]

NARRATIVE: CASE EVENT DATE: 20190217
